FAERS Safety Report 4408505-4 (Version None)
Quarter: 2004Q3

REPORT INFORMATION
  Report Type: 
  Country: None (occurrence: None)
  Receive Date: 20040722
  Receipt Date: 20040715
  Transmission Date: 20050211
  Serious: Yes (Hospitalization)
  Sender: FDA-Public Use
  Company Number: 2004CG01391

PATIENT
  Age: 75 Year
  Sex: Male
  Weight: 78 kg

DRUGS (5)
  1. NEXIUM [Suspect]
     Dosage: 40 MG QD PO
     Route: 048
     Dates: start: 20040531, end: 20040623
  2. EUPRESSYL [Suspect]
     Dosage: 5 MG QD IV
     Route: 042
     Dates: start: 20040618, end: 20040623
  3. DEBRIDAT [Concomitant]
  4. ACTRAPID [Concomitant]
  5. LOVENOX [Concomitant]

REACTIONS (5)
  - BRADYCARDIA [None]
  - CONVULSION [None]
  - HYPERHIDROSIS [None]
  - HYPERTENSIVE CRISIS [None]
  - MALAISE [None]
